FAERS Safety Report 24939204 (Version 1)
Quarter: 2025Q1

REPORT INFORMATION
  Report Type: Report from Study
  Country: US (occurrence: US)
  Receive Date: 20250206
  Receipt Date: 20250206
  Transmission Date: 20250409
  Serious: No
  Sender: INCYTE
  Company Number: US-EVENT-001326

PATIENT

DRUGS (2)
  1. JAKAFI [Suspect]
     Active Substance: RUXOLITINIB
     Indication: Product used for unknown indication
     Route: 048
     Dates: start: 2022
  2. JAKAFI [Suspect]
     Active Substance: RUXOLITINIB
     Dosage: 12.5 MILLIGRAM (HALF A 25 MG TABLET), BID
     Route: 048
     Dates: start: 202306

REACTIONS (1)
  - Wrong technique in product usage process [Not Recovered/Not Resolved]

NARRATIVE: CASE EVENT DATE: 20230601
